FAERS Safety Report 4643728-0 (Version None)
Quarter: 2005Q2

REPORT INFORMATION
  Report Type: 
  Country: None (occurrence: None)
  Receive Date: 20050425
  Receipt Date: 20050301
  Transmission Date: 20051028
  Serious: Yes (Other)
  Sender: FDA-Public Use
  Company Number: DE-BRISTOL-MYERS SQUIBB COMPANY-12883294

PATIENT
  Age: 52 Year
  Sex: Female
  Weight: 65 kg

DRUGS (2)
  1. TAXOL [Suspect]
     Indication: OVARIAN CANCER
     Dates: start: 20040802, end: 20041116
  2. CARBOPLATIN [Suspect]
     Indication: OVARIAN CANCER
     Dates: start: 20040802, end: 20041116

REACTIONS (10)
  - AMNESIA [None]
  - APHASIA [None]
  - DEAFNESS [None]
  - FEELING ABNORMAL [None]
  - GAIT DISTURBANCE [None]
  - LEUKOPENIA [None]
  - MENTAL IMPAIRMENT [None]
  - PRURITUS [None]
  - THROMBOCYTOPENIA [None]
  - TINNITUS [None]
